FAERS Safety Report 8982886 (Version 1)
Quarter: 2012Q4

REPORT INFORMATION
  Report Type: 
  Country: US (occurrence: US)
  Receive Date: 20121224
  Receipt Date: 20121224
  Transmission Date: 20130627
  Serious: Yes (Other)
  Sender: FDA-Public Use
  Company Number: US-PFIZER INC-2012321573

PATIENT
  Age: 10 Year
  Sex: Male

DRUGS (4)
  1. EFFEXOR XR [Suspect]
     Indication: NARCOLEPSY
     Dosage: UNK, 1x/day
  2. PROVIGIL [Suspect]
     Indication: NARCOLEPSY
     Dosage: UNK, 1x/day
     Route: 048
  3. PROVIGIL [Suspect]
     Indication: CATAPLEXY
  4. XYREM [Suspect]
     Indication: NARCOLEPSY
     Dosage: UNK, daily at night

REACTIONS (14)
  - Self injurious behaviour [Unknown]
  - Abnormal behaviour [Unknown]
  - Agitation [Unknown]
  - Injury corneal [Unknown]
  - Social avoidant behaviour [Unknown]
  - Enuresis [Unknown]
  - Sleep terror [Unknown]
  - Visual impairment [Unknown]
  - Dry skin [Unknown]
  - Laceration [Unknown]
  - Skin infection [Unknown]
  - Depressed mood [Unknown]
  - Skin haemorrhage [Unknown]
  - Off label use [Unknown]
